FAERS Safety Report 10032254 (Version 2)
Quarter: 2014Q2

REPORT INFORMATION
  Report Type: Spontaneous
  Country: US (occurrence: US)
  Receive Date: 20140324
  Receipt Date: 20140530
  Transmission Date: 20141212
  Serious: Yes (Other)
  Sender: FDA-Public Use
  Company Number: US-GLAXOSMITHKLINE-A1065620A

PATIENT
  Age: 47 Year
  Sex: Female
  Weight: 117.3 kg

DRUGS (7)
  1. BENLYSTA [Suspect]
     Indication: SYSTEMIC LUPUS ERYTHEMATOSUS
     Dosage: 1160MG MONTHLY
     Route: 042
     Dates: start: 201201, end: 201402
  2. PREDNISONE [Concomitant]
     Dosage: 7MG PER DAY
  3. PLAQUENIL [Concomitant]
     Dosage: 200MG TWICE PER DAY
  4. METFORMIN [Concomitant]
     Indication: DIABETES MELLITUS
  5. GLYBURIDE [Concomitant]
     Indication: HYPERTENSION
  6. NORVASC [Concomitant]
  7. IMURAN [Concomitant]
     Indication: PRODUCT USED FOR UNKNOWN INDICATION
     Dosage: 150MG PER DAY
     Dates: start: 2002, end: 201402

REACTIONS (3)
  - Breast cancer [Not Recovered/Not Resolved]
  - Fibrocystic breast disease [Unknown]
  - Mastectomy [Recovered/Resolved]
